FAERS Safety Report 23833744 (Version 1)
Quarter: 2024Q2

REPORT INFORMATION
  Report Type: Spontaneous
  Country: CN (occurrence: CN)
  Receive Date: 20240509
  Receipt Date: 20240509
  Transmission Date: 20240716
  Serious: Yes (Other)
  Sender: FDA-Public Use
  Company Number: CN-ABBVIE-5748278

PATIENT
  Age: 53 Year
  Sex: Female

DRUGS (1)
  1. ALPHAGAN P [Suspect]
     Active Substance: BRIMONIDINE TARTRATE
     Indication: Glaucoma
     Dosage: TIME INTERVAL: 0.33333333 DAYS: 0.3 MILLILITER
     Route: 047
     Dates: start: 20240403, end: 20240403

REACTIONS (5)
  - Papilloedema [Unknown]
  - Hypersensitivity [Recovering/Resolving]
  - Conjunctival disorder [Unknown]
  - Conjunctival hyperaemia [Unknown]
  - Optic nerve disorder [Unknown]

NARRATIVE: CASE EVENT DATE: 20240401
